FAERS Safety Report 23452250 (Version 1)
Quarter: 2024Q1

REPORT INFORMATION
  Report Type: Spontaneous
  Country: FR (occurrence: FR)
  Receive Date: 20240129
  Receipt Date: 20240129
  Transmission Date: 20240410
  Serious: Yes (Hospitalization)
  Sender: FDA-Public Use
  Company Number: None

PATIENT
  Age: 62 Year
  Sex: Male

DRUGS (2)
  1. ACETAMINOPHEN [Suspect]
     Active Substance: ACETAMINOPHEN
     Indication: Product used for unknown indication
     Dosage: 40 MILLIGRAM, 1 TOTAL
     Route: 048
     Dates: start: 20231214, end: 20231214
  2. MORPHINE SULFATE [Suspect]
     Active Substance: MORPHINE SULFATE
     Indication: Product used for unknown indication
     Dosage: 980 MILLIGRAM, 1 TOTAL
     Route: 048
     Dates: start: 20231216, end: 20231216

REACTIONS (7)
  - Metabolic acidosis [Recovering/Resolving]
  - Rhabdomyolysis [Recovering/Resolving]
  - Bradypnoea [Recovering/Resolving]
  - Poisoning deliberate [Recovered/Resolved]
  - Acute kidney injury [Recovering/Resolving]
  - Hepatic cytolysis [Recovering/Resolving]
  - Intentional overdose [Unknown]

NARRATIVE: CASE EVENT DATE: 20231214
